FAERS Safety Report 6031328-X (Version None)
Quarter: 2008Q4

REPORT INFORMATION
  Report Type: 
  Country: None (occurrence: None)
  Receive Date: 20081224
  Receipt Date: 20081013
  Transmission Date: 20090506
  Serious: Yes (Other)
  Sender: FDA-Public Use
  Company Number: US-CVT-080084

PATIENT
  Age: 60 Year
  Sex: Male

DRUGS (7)
  1. RANEXA [Suspect]
     Indication: DRUG USE FOR UNKNOWN INDICATION
     Dosage: 500 MG, BID, ORAL
     Route: 048
  2. ASPIRIN [Concomitant]
  3. PLAVIX [Concomitant]
  4. ISOSORBIDE MONONITRAET (ISOSORBIDE MONINITRATE) [Concomitant]
  5. METOPROLOL /00376901/ (METOPROLOL) [Concomitant]
  6. NITROGLYCERIN [Concomitant]
  7. LIPITOR [Concomitant]

REACTIONS (2)
  - ANGER [None]
  - NEOPLASM MALIGNANT [None]
